FAERS Safety Report 20605057 (Version 2)
Quarter: 2022Q1

REPORT INFORMATION
  Report Type: Spontaneous
  Country: ES (occurrence: ES)
  Receive Date: 20220317
  Receipt Date: 20220331
  Transmission Date: 20220423
  Serious: Yes (Disabling, Other)
  Sender: FDA-Public Use
  Company Number: ES-TEVA-2022-ES-2016707

PATIENT
  Age: 80 Year
  Sex: Female

DRUGS (1)
  1. PACLITAXEL [Suspect]
     Active Substance: PACLITAXEL
     Indication: Breast cancer
     Route: 065

REACTIONS (2)
  - Blindness [Unknown]
  - Maculopathy [Recovered/Resolved]
